FAERS Safety Report 7673072-9 (Version None)
Quarter: 2011Q3

REPORT INFORMATION
  Report Type: 
  Country: None (occurrence: None)
  Receive Date: 20110810
  Receipt Date: 20110803
  Transmission Date: 20111222
  Serious: Yes (Hospitalization)
  Sender: FDA-Public Use
  Company Number: US-BRISTOL-MYERS SQUIBB COMPANY-15944168

PATIENT
  Age: 75 Year
  Sex: Male
  Weight: 82 kg

DRUGS (3)
  1. METOPROLOL TARTRATE [Suspect]
  2. GM-CSF [Suspect]
     Indication: MALIGNANT MELANOMA
     Dosage: LAST ADMIN. 18-JUL-2011
     Route: 058
     Dates: start: 20110613
  3. IPILIMUMAB [Suspect]
     Indication: MALIGNANT MELANOMA
     Dosage: 10MG/KG IV OVER 90 MINS ON D1 Q12 WK,NO OF COURSE-2,LAST DOSE ON 05JUL2011.INTERRUPT ON 18JUL2011
     Route: 042
     Dates: start: 20110613

REACTIONS (1)
  - DEHYDRATION [None]
